FAERS Safety Report 17890259 (Version 2)
Quarter: 2020Q3

REPORT INFORMATION
  Report Type: Spontaneous
  Country: CH (occurrence: CH)
  Receive Date: 20200612
  Receipt Date: 20200709
  Transmission Date: 20201103
  Serious: Yes (Other)
  Sender: FDA-Public Use
  Company Number: CH-PFIZER INC-2020226648

PATIENT
  Age: 55 Year
  Sex: Male

DRUGS (12)
  1. CYTARABINE. [Suspect]
     Active Substance: CYTARABINE
     Dosage: 3760 MG, CYCLIC
     Route: 041
     Dates: start: 20200215, end: 20200321
  2. FILGRASTIM [Concomitant]
     Active Substance: FILGRASTIM
     Dosage: UNK, 1X/DAY (30 MIO)
     Dates: start: 20200302, end: 20200308
  3. FILGRASTIM [Concomitant]
     Active Substance: FILGRASTIM
     Dosage: UNK, 1X/DAY (30 MIO)
     Dates: start: 20200409, end: 20200413
  4. PARACETAMOL [Concomitant]
     Active Substance: ACETAMINOPHEN
     Dosage: 1000 MG, 4X/DAY
  5. FLUDARABINE [Suspect]
     Active Substance: FLUDARABINE PHOSPHATE
     Dosage: 57 MG, CYCLIC
     Route: 041
     Dates: start: 20200215, end: 20200321
  6. FRAXIPARINE [Concomitant]
     Active Substance: NADROPARIN CALCIUM
     Dosage: 0.6 ML, 1X/DAY
  7. IDARUBICINE [Suspect]
     Active Substance: IDARUBICIN
     Dosage: 15 MG, DAILY
     Route: 041
     Dates: start: 20200215, end: 20200217
  8. VIDAZA [Suspect]
     Active Substance: AZACITIDINE
     Dosage: 80 MG/M2, 1X/DAY
     Route: 058
     Dates: start: 20200424
  9. METHOTREXATE. [Concomitant]
     Active Substance: METHOTREXATE
     Dosage: 15 MG
  10. METHYLPREDNISOLONE. [Concomitant]
     Active Substance: METHYLPREDNISOLONE
     Dosage: 30 MG
  11. COTRIMOXAZOLE [Concomitant]
     Active Substance: SULFAMETHOXAZOLE\TRIMETHOPRIM
     Dosage: UNK, 3X/DAY (800/160)
     Dates: start: 202002
  12. VENCLYXTO [Suspect]
     Active Substance: VENETOCLAX
     Dosage: 200 MG, DAILY
     Route: 048
     Dates: start: 20200429

REACTIONS (4)
  - Agranulocytosis [Unknown]
  - Diabetic metabolic decompensation [Unknown]
  - Deep vein thrombosis [Unknown]
  - Cardiac failure [Not Recovered/Not Resolved]

NARRATIVE: CASE EVENT DATE: 2020
